FAERS Safety Report 7479419-0 (Version None)
Quarter: 2011Q2

REPORT INFORMATION
  Report Type: 
  Country: None (occurrence: None)
  Receive Date: 20110513
  Receipt Date: 20110509
  Transmission Date: 20111010
  Serious: Yes (Death, Hospitalization, Other)
  Sender: FDA-Public Use
  Company Number: JP-PFIZER INC-2011068829

PATIENT
  Age: 61 Year
  Sex: Male
  Weight: 50.8 kg

DRUGS (14)
  1. KINEDAK [Concomitant]
     Indication: NEUROPATHY PERIPHERAL
     Dosage: 50 MG, 3X/DAY
     Route: 048
  2. METHYCOBAL [Concomitant]
     Indication: NEUROPATHY PERIPHERAL
     Dosage: 500 UG, 3X/DAY
     Route: 048
     Dates: start: 20110319, end: 20110326
  3. SELBEX [Concomitant]
     Dosage: UNK
     Route: 048
  4. FERROUS CITRATE [Concomitant]
     Indication: ANAEMIA
     Dosage: 50 MG, 2X/DAY
     Route: 048
  5. RABEPRAZOLE SODIUM [Concomitant]
     Indication: PROPHYLAXIS AGAINST GASTROINTESTINAL ULCER
     Dosage: 20 MG, 1X/DAY
     Route: 048
  6. CALONAL [Concomitant]
     Indication: PAIN
     Dosage: UNK
     Route: 048
  7. AMPICILLIN SODIUM/SULBACTAM SODIUM [Concomitant]
     Indication: DIABETIC GANGRENE
     Dosage: 1.5 UNK, UNK
     Route: 042
     Dates: start: 20110308, end: 20110317
  8. AKINETON [Concomitant]
     Indication: SCHIZOPHRENIA
     Dosage: UNK MG, 1X/DAY
     Route: 048
  9. LASIX [Concomitant]
     Indication: OEDEMA
     Dosage: 40 MG, 1X/DAY
     Route: 048
  10. CALONAL [Concomitant]
     Dosage: 200 MG, 3X/DAY
     Route: 048
     Dates: start: 20110307, end: 20110326
  11. PERSANTIN [Concomitant]
     Indication: CARDIAC FAILURE CONGESTIVE
     Dosage: 50 MG, 3X/DAY
     Route: 048
  12. RISPERDAL [Concomitant]
     Indication: SCHIZOPHRENIA
     Dosage: UNK MG, 1X/DAY
     Route: 048
  13. LYRICA [Suspect]
     Indication: PAIN
     Dosage: 75 MG, 1X/DAY
     Route: 048
     Dates: start: 20110319, end: 20110321
  14. BENZALIN [Concomitant]
     Indication: SCHIZOPHRENIA
     Dosage: UNK
     Route: 048

REACTIONS (13)
  - WEIGHT INCREASED [None]
  - ARRHYTHMIA [None]
  - MYOCARDIAL INFARCTION [None]
  - PLEURAL EFFUSION [None]
  - ASCITES [None]
  - RENAL FAILURE [None]
  - ELECTROLYTE IMBALANCE [None]
  - OEDEMA [None]
  - CARDIAC FAILURE [None]
  - URINE OUTPUT DECREASED [None]
  - SOMNOLENCE [None]
  - CEREBRAL INFARCTION [None]
  - CIRCULATORY COLLAPSE [None]
